FAERS Safety Report 8472383-7 (Version None)
Quarter: 2012Q2

REPORT INFORMATION
  Report Type: 
  Country: None (occurrence: None)
  Receive Date: 20120627
  Receipt Date: 20110603
  Transmission Date: 20120825
  Serious: No
  Sender: FDA-Public Use
  Company Number: US-AMGEN-USASP2011028851

PATIENT
  Sex: Female

DRUGS (1)
  1. EPOGEN [Suspect]
     Indication: RENAL FAILURE CHRONIC
     Dosage: 7000 IU, 3 TIMES/WK
     Dates: end: 20110603

REACTIONS (2)
  - INCORRECT STORAGE OF DRUG [None]
  - HAEMOGLOBIN ABNORMAL [None]
